FAERS Safety Report 6339557-2 (Version None)
Quarter: 2009Q3

REPORT INFORMATION
  Report Type: 
  Country: None (occurrence: None)
  Receive Date: 20090903
  Receipt Date: 20090901
  Transmission Date: 20100115
  Serious: Yes (Death, Hospitalization)
  Sender: FDA-Public Use
  Company Number: JP-BAYER-200913010BYL

PATIENT
  Age: 65 Year
  Sex: Male
  Weight: 63 kg

DRUGS (6)
  1. NEXAVAR [Suspect]
     Indication: RENAL CELL CARCINOMA STAGE IV
     Dosage: TOTAL DAILY DOSE: 800 MG  UNIT DOSE: 200 MG
     Route: 048
     Dates: start: 20081021, end: 20090507
  2. NORVASC [Concomitant]
     Route: 048
     Dates: start: 20081022, end: 20081105
  3. ADALAT CC [Concomitant]
     Route: 048
     Dates: start: 20081106, end: 20081111
  4. ADALAT CC [Concomitant]
     Route: 048
     Dates: start: 20081225
  5. ADALAT CC [Concomitant]
     Route: 048
     Dates: start: 20081112, end: 20081224
  6. OLMETEC [Concomitant]
     Route: 048
     Dates: start: 20081225

REACTIONS (3)
  - DIARRHOEA [None]
  - PALMAR-PLANTAR ERYTHRODYSAESTHESIA SYNDROME [None]
  - RENAL CELL CARCINOMA [None]
